FAERS Safety Report 13973154 (Version 1)
Quarter: 2017Q3

REPORT INFORMATION
  Report Type: Report from Study
  Country: JP (occurrence: JP)
  Receive Date: 20170914
  Receipt Date: 20170914
  Transmission Date: 20171128
  Serious: Yes (Other)
  Sender: FDA-Public Use
  Company Number: JP-MYLANLABS-2017M1056976

PATIENT
  Sex: Female

DRUGS (2)
  1. HYDROCORTISONE. [Suspect]
     Active Substance: HYDROCORTISONE
     Indication: SUPPLEMENTATION THERAPY
     Dosage: 50MG AT THE ONSET OF LABOUR AND EVERY 8HOURS UNTIL DELIVERY FOLLOWED BY 25MG DOSE
     Route: 042
  2. HYDROCORTISONE. [Suspect]
     Active Substance: HYDROCORTISONE
     Dosage: 25MG EVERY 8HOURS FOR ONE DAY
     Route: 065

REACTIONS (2)
  - Maternal exposure during delivery [Recovered/Resolved]
  - Endometriosis [Unknown]
